FAERS Safety Report 7379251-2 (Version None)
Quarter: 2011Q1

REPORT INFORMATION
  Report Type: 
  Country: None (occurrence: None)
  Receive Date: 20110328
  Receipt Date: 20101028
  Transmission Date: 20110831
  Serious: Yes (Other)
  Sender: FDA-Public Use
  Company Number: GB-AMGEN-GBRCT2010001961

PATIENT
  Age: 65 Year
  Sex: Female
  Weight: 84 kg

DRUGS (6)
  1. ROFECOXIB [Concomitant]
     Dosage: UNKNOWN
  2. PREDNISOLONE [Concomitant]
     Dosage: UNKNOWN
  3. FOLIC ACID [Concomitant]
     Dosage: UNKNOWN
  4. ETANERCEPT [Suspect]
     Indication: RHEUMATOID ARTHRITIS
     Dosage: 25 MG, 2 TIMES/WK
     Dates: start: 20040127, end: 20050115
  5. TRAMADOL [Concomitant]
     Dosage: UNKNOWN
  6. LEFLUNOMIDE [Concomitant]
     Dosage: UNKNOWN

REACTIONS (1)
  - MULTIPLE MYELOMA [None]
